FAERS Safety Report 21857617 (Version 1)
Quarter: 2023Q1

REPORT INFORMATION
  Report Type: Spontaneous
  Country: US (occurrence: US)
  Receive Date: 20230113
  Receipt Date: 20230113
  Transmission Date: 20230418
  Serious: No
  Sender: FDA-Public Use
  Company Number: US-ELI_LILLY_AND_COMPANY-US202301003989

PATIENT
  Age: 64 Year
  Sex: Male

DRUGS (2)
  1. MOUNJARO [Suspect]
     Active Substance: TIRZEPATIDE
     Indication: Weight decreased
     Dosage: 5 MG, UNKNOWN
     Route: 058
  2. MOUNJARO [Suspect]
     Active Substance: TIRZEPATIDE
     Indication: Weight decreased
     Dosage: 2.5 MG, UNKNOWN (TWO DOSE OF 2.5 MG)
     Route: 058

REACTIONS (7)
  - Nervousness [Recovered/Resolved]
  - Dizziness [Recovered/Resolved]
  - Electrolyte imbalance [Recovered/Resolved]
  - Pollakiuria [Unknown]
  - Fall [Recovered/Resolved]
  - Nocturia [Recovered/Resolved]
  - Off label use [Unknown]

NARRATIVE: CASE EVENT DATE: 20230104
